FAERS Safety Report 15753014 (Version 1)
Quarter: 2018Q4

REPORT INFORMATION
  Report Type: Spontaneous
  Country: FR (occurrence: FR)
  Receive Date: 20181221
  Receipt Date: 20181221
  Transmission Date: 20190205
  Serious: Yes (Hospitalization)
  Sender: FDA-Public Use
  Company Number: FR-TEVA-2018-FR-989136

PATIENT
  Age: 68 Year
  Sex: Male
  Weight: 155 kg

DRUGS (10)
  1. BIPROFENID [Concomitant]
     Active Substance: KETOPROFEN
  2. ALPRESS L.P. 2,5 MG, COMPRIM? OSMOTIQUE ? LIB?RATION PROLONG?E [Concomitant]
     Dosage: 2.5 MILLIGRAM DAILY;
     Route: 048
  3. LERCAPRESS [Concomitant]
     Active Substance: ENALAPRIL MALEATE\LERCANIDIPINE HYDROCHLORIDE
     Dosage: 1 DOSAGE FORMS DAILY;
     Route: 048
  4. BISOPROLOL (HEMIFUMARATE DE) [Concomitant]
     Active Substance: BISOPROLOL FUMARATE
     Dosage: 2.5 MILLIGRAM DAILY;
     Route: 048
  5. EFFERALGAN [Concomitant]
     Active Substance: ACETAMINOPHEN
     Route: 048
  6. AVODART [Concomitant]
     Active Substance: DUTASTERIDE
  7. METFORMINE [Suspect]
     Active Substance: METFORMIN HYDROCHLORIDE
     Indication: TYPE 2 DIABETES MELLITUS
     Dosage: 2550 MILLIGRAM DAILY;
     Route: 048
     Dates: end: 20171222
  8. TADENAN [Concomitant]
     Active Substance: PYGEUM
     Route: 048
  9. ALLOPURINOL. [Concomitant]
     Active Substance: ALLOPURINOL
     Route: 048
  10. SILODYX [Concomitant]
     Active Substance: SILODOSIN
     Route: 048

REACTIONS (2)
  - Lactic acidosis [Recovered/Resolved]
  - Acute kidney injury [Recovered/Resolved]

NARRATIVE: CASE EVENT DATE: 20171221
